FAERS Safety Report 8761270 (Version 1)
Quarter: 2012Q4

REPORT INFORMATION
  Report Type: 
  Country: TR (occurrence: TR)
  Receive Date: 20120830
  Receipt Date: 20120830
  Transmission Date: 20130627
  Serious: Yes (Other)
  Sender: FDA-Public Use
  Company Number: TR-JHP PHARMACEUTICALS, LLC-JHP201200427

PATIENT
  Age: 8 Year
  Sex: Male

DRUGS (1)
  1. KETALAR [Suspect]
     Indication: ANAESTHESIA PROCEDURE
     Dosage: Low dose

REACTIONS (1)
  - Myoclonus [Recovered/Resolved]
